FAERS Safety Report 4353017-X (Version None)
Quarter: 2004Q2

REPORT INFORMATION
  Report Type: 
  Country: None (occurrence: None)
  Receive Date: 20040429
  Receipt Date: 20040414
  Transmission Date: 20050107
  Serious: Yes (Hospitalization)
  Sender: FDA-Public Use
  Company Number: 8005941

PATIENT
  Age: 40 Year
  Sex: Male

DRUGS (3)
  1. KEPPRA [Suspect]
     Indication: EPILEPSY
     Dosage: 1000 MG 2/D PO
     Route: 048
  2. CARBAMAZEPINE [Suspect]
     Dosage: 1350 MG
     Dates: end: 20040324
  3. CARBAMAZEPINE [Suspect]
     Dosage: 1200 MG
     Dates: start: 20040325

REACTIONS (7)
  - DELUSION [None]
  - DISORIENTATION [None]
  - DRUG INTERACTION [None]
  - DRUG LEVEL INCREASED [None]
  - HOSTILITY [None]
  - PERSONALITY CHANGE [None]
  - PSYCHOTIC DISORDER [None]
